FAERS Safety Report 7706777-1 (Version None)
Quarter: 2011Q3

REPORT INFORMATION
  Report Type: 
  Country: None (occurrence: None)
  Receive Date: 20110824
  Receipt Date: 20110822
  Transmission Date: 20111222
  Serious: Yes (Hospitalization, Other)
  Sender: FDA-Public Use
  Company Number: US-PFIZER INC-2011041919

PATIENT
  Sex: Male
  Weight: 97.51 kg

DRUGS (36)
  1. EFFEXOR XR [Suspect]
     Indication: SPINAL FRACTURE
     Dosage: 150 MG, 2X/DAY
     Route: 048
  2. LIPITOR [Suspect]
     Indication: LOWER LIMB FRACTURE
     Dosage: 40 MG, DAILY
     Route: 048
  3. LYRICA [Suspect]
     Indication: ANXIETY
  4. LIPITOR [Suspect]
     Indication: HEAD DISCOMFORT
     Dosage: 80 MG, 2X/DAY
     Route: 048
  5. PROTONIX [Suspect]
     Indication: HEAD DISCOMFORT
     Dosage: 40 MG, 1X/DAY
     Route: 048
  6. WARFARIN SODIUM [Suspect]
     Indication: SPINAL FRACTURE
     Dosage: 10 MG DAILY
  7. WARFARIN SODIUM [Suspect]
     Dosage: 5 MG DAILY
  8. TOPROL-XL [Concomitant]
     Indication: BLOOD PRESSURE INCREASED
     Dosage: 50 MG, 2X/DAY
  9. EFFEXOR XR [Suspect]
     Indication: DEPRESSION
  10. PROTONIX [Suspect]
     Indication: SPINAL FRACTURE
  11. PROTONIX [Suspect]
     Indication: DEPRESSION
  12. NORVASC [Suspect]
     Indication: ANXIETY
  13. NORVASC [Suspect]
     Indication: NERVE INJURY
  14. NORVASC [Suspect]
     Indication: DEPRESSION
  15. LYRICA [Suspect]
     Indication: HEAD DISCOMFORT
     Dosage: 50 MG, 2X/DAY
  16. LYRICA [Suspect]
     Indication: NERVE INJURY
  17. EFFEXOR XR [Suspect]
     Indication: HEAD DISCOMFORT
     Dosage: 75 MG, 3X/DAY
     Route: 048
  18. PROTONIX [Suspect]
     Indication: LOWER LIMB FRACTURE
  19. WARFARIN SODIUM [Suspect]
     Indication: HEAD DISCOMFORT
     Dosage: 11.25 MG DAILY
  20. TRICOR [Concomitant]
     Indication: BLOOD CHOLESTEROL INCREASED
     Dosage: 145 MG, 1X/DAY
  21. LYRICA [Suspect]
     Indication: LOWER LIMB FRACTURE
     Dosage: 150 MG DAILY
     Route: 048
  22. EFFEXOR XR [Suspect]
     Indication: LOWER LIMB FRACTURE
     Dosage: 150 MG, 2X/DAY
     Route: 048
  23. EFFEXOR XR [Suspect]
     Indication: ANXIETY
  24. LIPITOR [Suspect]
     Indication: SPINAL FRACTURE
     Dosage: 40 MG, 2X/DAY
  25. LIPITOR [Suspect]
     Indication: DEPRESSION
  26. LYRICA [Suspect]
     Indication: DEPRESSION
  27. EFFEXOR XR [Suspect]
     Indication: NERVE INJURY
  28. LIPITOR [Suspect]
     Indication: NERVE INJURY
  29. PROTONIX [Suspect]
     Indication: ANXIETY
  30. PROTONIX [Suspect]
     Indication: NERVE INJURY
  31. NORVASC [Suspect]
     Indication: HEAD DISCOMFORT
     Dosage: 10 MG, DAILY
     Route: 048
  32. NORVASC [Suspect]
     Indication: SPINAL FRACTURE
  33. NORVASC [Suspect]
     Indication: LOWER LIMB FRACTURE
  34. WARFARIN SODIUM [Suspect]
     Indication: LOWER LIMB FRACTURE
     Dosage: 7.5 MG DAILY
  35. LYRICA [Suspect]
     Indication: SPINAL FRACTURE
     Dosage: 100 MG, 3X/DAY
  36. LIPITOR [Suspect]
     Indication: ANXIETY

REACTIONS (6)
  - FUNCTIONAL GASTROINTESTINAL DISORDER [None]
  - THROMBOSIS [None]
  - GAIT DISTURBANCE [None]
  - OEDEMA PERIPHERAL [None]
  - HAEMORRHOIDAL HAEMORRHAGE [None]
  - RENAL DISORDER [None]
